FAERS Safety Report 20810745 (Version 1)
Quarter: 2022Q2

REPORT INFORMATION
  Report Type: Report from Study
  Country: MW (occurrence: MW)
  Receive Date: 20220510
  Receipt Date: 20220510
  Transmission Date: 20220720
  Serious: Yes (Other)
  Sender: FDA-Public Use
  Company Number: MW-GlaxoSmithKline-MW2022GSK075600

PATIENT
  Sex: Male

DRUGS (9)
  1. LAMIVUDINE [Suspect]
     Active Substance: LAMIVUDINE
     Indication: HIV infection CDC category C
     Dosage: UNK
  2. TENOFOVIR DISOPROXIL FUMARATE [Suspect]
     Active Substance: TENOFOVIR DISOPROXIL FUMARATE
     Indication: HIV infection CDC category C
     Dosage: UNK
  3. ZIDOVUDINE [Suspect]
     Active Substance: ZIDOVUDINE
     Indication: HIV infection CDC category C
     Dosage: UNK
  4. RIFAMPIN [Interacting]
     Active Substance: RIFAMPIN
     Indication: Extrapulmonary tuberculosis
     Dosage: UNK
  5. DOLUTEGRAVIR\LAMIVUDINE\TENOFOVIR DISOPROXIL FUMARATE [Interacting]
     Active Substance: DOLUTEGRAVIR\LAMIVUDINE\TENOFOVIR DISOPROXIL FUMARATE
     Indication: HIV infection CDC category C
     Dosage: UNK
  6. STAVUDINE [Suspect]
     Active Substance: STAVUDINE
     Indication: HIV infection CDC category C
     Dosage: UNK
  7. NEVIRAPINE [Concomitant]
     Active Substance: NEVIRAPINE
     Indication: HIV infection CDC category C
     Dosage: UNK
  8. EFAVIRENZ [Concomitant]
     Active Substance: EFAVIRENZ
     Indication: HIV infection CDC category C
     Dosage: UNK
  9. ATAZANAVIR\RITONAVIR [Concomitant]
     Active Substance: ATAZANAVIR\RITONAVIR
     Indication: HIV infection CDC category C
     Dosage: UNK

REACTIONS (4)
  - Pathogen resistance [Unknown]
  - Viral mutation identified [Unknown]
  - Multiple-drug resistance [Unknown]
  - Drug interaction [Unknown]
